FAERS Safety Report 8036417-6 (Version None)
Quarter: 2012Q1

REPORT INFORMATION
  Report Type: 
  Country: None (occurrence: None)
  Receive Date: 20120106
  Receipt Date: 20111228
  Transmission Date: 20120608
  Serious: Yes (Other)
  Sender: FDA-Public Use
  Company Number: 2011MA018185

PATIENT
  Age: 76 Year
  Sex: Male

DRUGS (9)
  1. FUROSEMIDE [Concomitant]
  2. PROPRANOLOL [Concomitant]
  3. PREDNISOLONE [Concomitant]
  4. RANITIDINE [Concomitant]
  5. PRAMIPEXOLE DIHYDROCHLORIDE [Suspect]
     Indication: PARKINSON'S DISEASE
     Dosage: 4 MG;QD
  6. ARANESP [Concomitant]
  7. ADALAT CC [Concomitant]
  8. PERINDOPRIL [Concomitant]
  9. ALFACALCIDOL [Concomitant]

REACTIONS (4)
  - NEPHROPATHY [None]
  - RENAL TUBULAR DISORDER [None]
  - RENAL IMPAIRMENT [None]
  - TUBULOINTERSTITIAL NEPHRITIS [None]
